FAERS Safety Report 5063730-7 (Version None)
Quarter: 2006Q3

REPORT INFORMATION
  Report Type: 
  Country: None (occurrence: None)
  Receive Date: 20060724
  Receipt Date: 20060713
  Transmission Date: 20061208
  Serious: Yes (Other)
  Sender: FDA-Public Use
  Company Number: 2006087460

PATIENT
  Age: 46 Year
  Sex: Female
  Weight: 104.3273 kg

DRUGS (3)
  1. BENADRYL [Suspect]
     Indication: URTICARIA
     Dosage: 2 TABLETS (50 MG) EVERY 4 HRS, ORAL
     Route: 048
     Dates: start: 20060501
  2. SERETIDE MITE (FLUTICASONE PROPIONATE, SALMETEROL XINAFOATE) [Concomitant]
  3. SALBUTAMOL (SALBUTAMOL) [Concomitant]

REACTIONS (3)
  - CHILLS [None]
  - CHOLANGITIS [None]
  - WHITE BLOOD CELL COUNT INCREASED [None]
